FAERS Safety Report 8909084 (Version 1)
Quarter: 2012Q4

REPORT INFORMATION
  Report Type: 
  Country: MX (occurrence: MX)
  Receive Date: 20121114
  Receipt Date: 20121114
  Transmission Date: 20130627
  Serious: Yes (Other)
  Sender: FDA-Public Use
  Company Number: MX-UCBSA-070757

PATIENT
  Age: 24 Year
  Sex: Male
  Weight: 70 kg

DRUGS (2)
  1. VIMPAT [Suspect]
     Indication: EPILEPSY
     Route: 048
     Dates: start: 20121003, end: 20121004
  2. NONE [Concomitant]

REACTIONS (2)
  - Convulsion [Recovered/Resolved]
  - Dizziness [Recovered/Resolved]
